FAERS Safety Report 5136427-2 (Version None)
Quarter: 2006Q4

REPORT INFORMATION
  Report Type: 
  Country: None (occurrence: None)
  Receive Date: 20061027
  Receipt Date: 20051010
  Transmission Date: 20070319
  Serious: No
  Sender: FDA-Public Use
  Company Number: US-BRISTOL-MYERS SQUIBB COMPANY-13139985

PATIENT
  Age: 59 Year
  Sex: Female
  Weight: 63 kg

DRUGS (7)
  1. KENALOG-40 [Suspect]
     Indication: SINUSITIS
     Dosage: DURATION: 4-5 MONTHS
     Route: 045
  2. PREDNISONE TAB [Concomitant]
  3. ARMOUR THYROID [Concomitant]
  4. ESTRACE [Concomitant]
  5. OXAZEPAM [Concomitant]
  6. HYDROCHLOROTHIAZIDE DIURETIC [Concomitant]
  7. PREMARIN [Concomitant]
     Route: 067

REACTIONS (1)
  - DYSGEUSIA [None]
